FAERS Safety Report 7113752-7 (Version None)
Quarter: 2010Q4

REPORT INFORMATION
  Report Type: 
  Country: None (occurrence: None)
  Receive Date: 20101119
  Receipt Date: 20101110
  Transmission Date: 20110411
  Serious: Yes (Other)
  Sender: FDA-Public Use
  Company Number: JP-JNJFOC-20100907717

PATIENT
  Sex: Female
  Weight: 57 kg

DRUGS (14)
  1. REMICADE [Suspect]
     Indication: CROHN'S DISEASE
     Route: 042
  2. REMICADE [Suspect]
     Route: 042
  3. REMICADE [Suspect]
     Route: 042
  4. REMICADE [Suspect]
     Dosage: 7 INFUSIONS ADMINISTERED ON UNKNOWN DATES
     Route: 042
  5. REMICADE [Suspect]
     Dosage: 11TH INFUSION
     Route: 042
  6. PREDNISOLONE [Suspect]
     Indication: PRODUCT USED FOR UNKNOWN INDICATION
  7. LAC-B [Concomitant]
     Indication: BOWEL MOVEMENT IRREGULARITY
     Route: 048
  8. PENTASA [Concomitant]
     Indication: CROHN'S DISEASE
     Route: 048
  9. LIVALO [Concomitant]
     Indication: HYPERCHOLESTEROLAEMIA
     Route: 048
  10. ZETIA [Concomitant]
     Indication: HYPERCHOLESTEROLAEMIA
     Route: 048
  11. ELENTAL [Concomitant]
     Indication: CROHN'S DISEASE
     Route: 048
  12. ISCOTIN [Concomitant]
     Indication: ANTIBIOTIC PROPHYLAXIS
     Route: 048
  13. TAKEPRON [Concomitant]
     Indication: REFLUX OESOPHAGITIS
     Route: 048
  14. MAGNESIUM OXIDE [Concomitant]
     Indication: CONSTIPATION
     Route: 048

REACTIONS (1)
  - BLADDER CANCER [None]
